FAERS Safety Report 4310254-8 (Version None)
Quarter: 2004Q1

REPORT INFORMATION
  Report Type: 
  Country: None (occurrence: None)
  Receive Date: 20040301
  Receipt Date: 20040301
  Transmission Date: 20041129
  Serious: Yes (Life-Threatening, Disabling, Other)
  Sender: FDA-Public Use
  Company Number: None

PATIENT
  Age: 25 Year
  Sex: Male
  Weight: 84.8226 kg

DRUGS (2)
  1. PAXIL [Suspect]
     Indication: ANXIETY
     Dosage: ONCE DAILY ORAL
     Route: 048
     Dates: start: 20021001, end: 20040227
  2. PAXIL [Suspect]
     Indication: HEPATITIS C
     Dosage: ONCE DAILY ORAL
     Route: 048
     Dates: start: 20021001, end: 20040227

REACTIONS (9)
  - DRUG WITHDRAWAL SYNDROME [None]
  - HEAD INJURY [None]
  - IMPRISONMENT [None]
  - JOINT SPRAIN [None]
  - LEGAL PROBLEM [None]
  - NERVE INJURY [None]
  - PERIORBITAL HAEMATOMA [None]
  - POISONING [None]
  - STRESS SYMPTOMS [None]
